FAERS Safety Report 5671376-2 (Version None)
Quarter: 2008Q1

REPORT INFORMATION
  Report Type: 
  Country: None (occurrence: None)
  Receive Date: 20080318
  Receipt Date: 20080306
  Transmission Date: 20080703
  Serious: Yes (Hospitalization, Other)
  Sender: FDA-Public Use
  Company Number: US-PFIZER INC-2008021284

PATIENT
  Sex: Male
  Weight: 109.09 kg

DRUGS (13)
  1. DILANTIN [Suspect]
     Indication: CONVULSION
  2. XELODA [Concomitant]
  3. PRIMIDONE [Concomitant]
  4. FUROSEMIDE [Concomitant]
  5. TAMSULOSIN HCL [Concomitant]
  6. FINASTERIDE [Concomitant]
  7. LISINOPRIL [Concomitant]
  8. GLIPIZIDE [Concomitant]
  9. SIMVASTATIN [Concomitant]
  10. TEMAZEPAM [Concomitant]
  11. VICODIN [Concomitant]
  12. DIPHENHYDRAMINE HCL [Concomitant]
  13. HYDROXYZINE [Concomitant]

REACTIONS (3)
  - FALL [None]
  - MYOCARDIAL INFARCTION [None]
  - THERAPEUTIC AGENT TOXICITY [None]
